FAERS Safety Report 8289443-6 (Version None)
Quarter: 2012Q2

REPORT INFORMATION
  Report Type: 
  Country: None (occurrence: None)
  Receive Date: 20120417
  Receipt Date: 20120412
  Transmission Date: 20120825
  Serious: Yes (Hospitalization)
  Sender: FDA-Public Use
  Company Number: IT-ABBOTT-12P-083-0910112-00

PATIENT
  Sex: Female

DRUGS (1)
  1. CLARITHROMYCIN [Suspect]
     Indication: TOOTH ABSCESS
     Dosage: TOTAL
     Route: 048
     Dates: start: 20120228, end: 20120228

REACTIONS (4)
  - DYSPHONIA [None]
  - PALATAL OEDEMA [None]
  - LARYNGEAL OEDEMA [None]
  - MACROGLOSSIA [None]
